FAERS Safety Report 18235145 (Version 7)
Quarter: 2021Q3

REPORT INFORMATION
  Report Type: Report from Study
  Country: US (occurrence: US)
  Receive Date: 20200905
  Receipt Date: 20210906
  Transmission Date: 20211014
  Serious: Yes (Hospitalization, Other)
  Sender: FDA-Public Use
  Company Number: US-SHIRE-US202028646

PATIENT
  Sex: Female
  Weight: 124 kg

DRUGS (33)
  1. CUVITRU [Suspect]
     Active Substance: HUMAN IMMUNOGLOBULIN G
     Indication: HUMORAL IMMUNE DEFECT
  2. PRAVASTATIN. [Concomitant]
     Active Substance: PRAVASTATIN
     Route: 065
  3. DIPHENHYDRAMINE. [Concomitant]
     Active Substance: DIPHENHYDRAMINE
     Route: 065
  4. CUVITRU [Suspect]
     Active Substance: HUMAN IMMUNOGLOBULIN G
     Indication: SELECTIVE IGG SUBCLASS DEFICIENCY
     Dosage: 20 GRAM, Q2WEEKS
     Route: 058
     Dates: start: 20170530
  5. CUVITRU [Suspect]
     Active Substance: HUMAN IMMUNOGLOBULIN G
     Indication: IMMUNODEFICIENCY COMMON VARIABLE
  6. VITAMIN B12 [Concomitant]
     Active Substance: CYANOCOBALAMIN
     Route: 065
  7. EVAMIST [Concomitant]
     Active Substance: ESTRADIOL
     Route: 065
  8. QVAR [Concomitant]
     Active Substance: BECLOMETHASONE DIPROPIONATE
     Route: 065
  9. LMX [Concomitant]
     Route: 065
  10. CUVITRU [Suspect]
     Active Substance: HUMAN IMMUNOGLOBULIN G
     Indication: TRANSIENT HYPOGAMMAGLOBULINAEMIA OF INFANCY
  11. COVID?19 VACCINE NOS. [Suspect]
     Active Substance: COVID-19 VACCINE NOS
     Indication: PRODUCT USED FOR UNKNOWN INDICATION
     Dosage: UNK
     Route: 065
     Dates: start: 202103
  12. ACETAMINOPHEN. [Concomitant]
     Active Substance: ACETAMINOPHEN
     Route: 065
  13. LIDOCAINE/PRILOCAINE [Concomitant]
     Active Substance: LIDOCAINE\PRILOCAINE
     Route: 065
  14. TRULICITY [Concomitant]
     Active Substance: DULAGLUTIDE
     Route: 065
  15. TRESIBA [Concomitant]
     Active Substance: INSULIN DEGLUDEC
     Route: 065
  16. PROAIR HFA [Concomitant]
     Active Substance: ALBUTEROL SULFATE
     Route: 065
  17. TRAMADOL. [Concomitant]
     Active Substance: TRAMADOL
     Route: 065
  18. DEXILANT [Concomitant]
     Active Substance: DEXLANSOPRAZOLE
     Route: 065
  19. SYMBICORT [Concomitant]
     Active Substance: BUDESONIDE\FORMOTEROL FUMARATE DIHYDRATE
     Route: 065
  20. METFORMIN [Concomitant]
     Active Substance: METFORMIN HYDROCHLORIDE
     Route: 065
  21. EPINEPHRINE. [Concomitant]
     Active Substance: EPINEPHRINE
     Route: 065
  22. HUMALOG [Concomitant]
     Active Substance: INSULIN LISPRO
     Route: 065
  23. OLMESARTAN [Concomitant]
     Active Substance: OLMESARTAN
     Route: 065
  24. ZANAFLEX [Concomitant]
     Active Substance: TIZANIDINE HYDROCHLORIDE
     Route: 065
  25. OXYGEN. [Concomitant]
     Active Substance: OXYGEN
     Route: 065
  26. CYMBALTA [Concomitant]
     Active Substance: DULOXETINE HYDROCHLORIDE
     Route: 065
  27. LASIX [Concomitant]
     Active Substance: FUROSEMIDE
     Route: 065
  28. FLUTICASONE. [Concomitant]
     Active Substance: FLUTICASONE
     Route: 065
  29. SENNA PLUS [SENNA ALEXANDRINA] [Concomitant]
     Route: 065
  30. DILTIAZEM. [Concomitant]
     Active Substance: DILTIAZEM
     Route: 065
  31. MIRAPEX [Concomitant]
     Active Substance: PRAMIPEXOLE DIHYDROCHLORIDE
     Route: 065
  32. PREDNISONE. [Concomitant]
     Active Substance: PREDNISONE
     Route: 065
  33. ALBUTEROL [SALBUTAMOL] [Concomitant]
     Active Substance: ALBUTEROL
     Route: 065

REACTIONS (13)
  - Gastric polyps [Unknown]
  - Haemoglobin decreased [Unknown]
  - Anal haemorrhage [Unknown]
  - Rectal polyp [Unknown]
  - Weight increased [Unknown]
  - Anal fissure [Unknown]
  - Post laminectomy syndrome [Unknown]
  - Infusion site nodule [Unknown]
  - COVID-19 [Unknown]
  - Vulvovaginal injury [Unknown]
  - Tissue injury [Unknown]
  - Asthenia [Not Recovered/Not Resolved]
  - Product dose omission issue [Unknown]
